FAERS Safety Report 9693977 (Version 2)
Quarter: 2014Q1

REPORT INFORMATION
  Report Type: Report from Study
  Country: BR (occurrence: BR)
  Receive Date: 20131118
  Receipt Date: 20140122
  Transmission Date: 20141002
  Serious: Yes (Other)
  Sender: FDA-Public Use
  Company Number: BR-ELI_LILLY_AND_COMPANY-BR201311002990

PATIENT
  Age: 20 Year
  Sex: Female

DRUGS (7)
  1. LISPRO REGLISPRO [Suspect]
     Indication: TYPE 1 DIABETES MELLITUS
     Dosage: UNK, PRN
     Route: 065
     Dates: start: 1993
  2. HUMULIN N [Suspect]
     Indication: TYPE 1 DIABETES MELLITUS
     Dosage: 28 IU, EACH MORNING
     Route: 065
     Dates: start: 1993
  3. HUMULIN N [Suspect]
     Dosage: 6 IU, QD
     Route: 065
     Dates: start: 1993
  4. HUMULIN N [Suspect]
     Dosage: 10 IU, EACH EVENING
     Route: 065
     Dates: start: 1993
  5. CITALOPRAM [Concomitant]
     Indication: DEPRESSION
     Dosage: UNK, BID
     Route: 065
  6. ALPRAZOLAM [Concomitant]
     Indication: DEPRESSION
     Dosage: UNK, BID
     Route: 065
  7. PURAN T4 [Concomitant]
     Indication: THYROID DISORDER
     Dosage: 100 MG, QD
     Route: 065

REACTIONS (5)
  - Abortion spontaneous [Unknown]
  - Injection site nodule [Not Recovered/Not Resolved]
  - Hyperglycaemia [Recovered/Resolved]
  - Incorrect dose administered [Unknown]
  - Exposure during pregnancy [Unknown]
